FAERS Safety Report 8823526 (Version 2)
Quarter: 2013Q1

REPORT INFORMATION
  Report Type: Spontaneous
  Country: US (occurrence: US)
  Receive Date: 20121003
  Receipt Date: 20130307
  Transmission Date: 20140127
  Serious: No
  Sender: FDA-Public Use
  Company Number: US-VERTEX PHARMACEUTICAL INC.-2012-021131

PATIENT
  Sex: Female

DRUGS (1)
  1. INCIVEK [Suspect]
     Indication: HEPATITIS C
     Dosage: 750 MG, TID
     Route: 048
     Dates: start: 20120724

REACTIONS (6)
  - Contusion [Unknown]
  - Rectal haemorrhage [Unknown]
  - Diarrhoea [Unknown]
  - Haemorrhoids [Unknown]
  - Anorectal discomfort [Unknown]
  - Rash generalised [Unknown]
